FAERS Safety Report 12495722 (Version 2)
Quarter: 2016Q2

REPORT INFORMATION
  Report Type: Report from Study
  Country: DE (occurrence: DE)
  Receive Date: 20160624
  Receipt Date: 20160630
  Transmission Date: 20160815
  Serious: Yes (Hospitalization, Other)
  Sender: FDA-Public Use
  Company Number: DE-ABBVIE-16P-062-1656859-00

PATIENT
  Age: 74 Year
  Sex: Female

DRUGS (4)
  1. MOVICOL [Concomitant]
     Active Substance: POLYETHYLENE GLYCOL 3350\POTASSIUM CHLORIDE\SODIUM BICARBONATE\SODIUM CHLORIDE
     Indication: PRODUCT USED FOR UNKNOWN INDICATION
     Dosage: 1-0-0
     Route: 048
  2. DUODOPA [Suspect]
     Active Substance: CARBIDOPA\LEVODOPA
     Indication: PARKINSON^S DISEASE
     Dosage: 2.8 ML/H
     Route: 050
     Dates: start: 20160615
  3. DIPIDOLOR [Concomitant]
     Active Substance: PIRITRAMIDE
     Indication: PRODUCT USED FOR UNKNOWN INDICATION
  4. NOVALGIN [Concomitant]
     Active Substance: METAMIZOLE SODIUM
     Indication: PRODUCT USED FOR UNKNOWN INDICATION

REACTIONS (8)
  - Constipation [Unknown]
  - Ileus [Unknown]
  - Feeling abnormal [Not Recovered/Not Resolved]
  - Peritonitis [Not Recovered/Not Resolved]
  - Abdominal pain [Unknown]
  - Infection [Recovered/Resolved]
  - Pain [Recovered/Resolved]
  - Inflammatory marker increased [Unknown]

NARRATIVE: CASE EVENT DATE: 20160616
